FAERS Safety Report 10067375 (Version 1)
Quarter: 2014Q2

REPORT INFORMATION
  Report Type: Spontaneous
  Country: US (occurrence: None)
  Receive Date: 20140408
  Receipt Date: 20140408
  Transmission Date: 20141212
  Serious: Yes (Other)
  Sender: FDA-Public Use
  Company Number: None

PATIENT
  Age: 56 Year
  Sex: Male
  Weight: 69 kg

DRUGS (1)
  1. ROCURONIUM [Suspect]
     Dosage: 40 MG ONCE INTRAVENOUS
     Route: 042
     Dates: start: 20140310, end: 20140310

REACTIONS (1)
  - No therapeutic response [None]
